FAERS Safety Report 14292559 (Version 6)
Quarter: 2018Q2

REPORT INFORMATION
  Report Type: Report from Study
  Country: DE (occurrence: DE)
  Receive Date: 20171215
  Receipt Date: 20180529
  Transmission Date: 20180711
  Serious: Yes (Other)
  Sender: FDA-Public Use
  Company Number: DE-PFIZER INC-2017530133

PATIENT
  Age: 58 Year
  Sex: Female
  Weight: 73 kg

DRUGS (9)
  1. AFINITOR [Suspect]
     Active Substance: EVEROLIMUS
     Indication: BREAST CANCER
     Dosage: 10 MG, 1X/DAY (QD)
     Route: 048
     Dates: start: 20160331, end: 20160424
  2. AFINITOR [Suspect]
     Active Substance: EVEROLIMUS
     Dosage: 10 MG, 1X/DAY  (QD)
     Route: 048
     Dates: start: 20160711, end: 20160815
  3. AFINITOR [Suspect]
     Active Substance: EVEROLIMUS
     Dosage: 5 MG, 1X/DAY  (QD)
     Route: 048
     Dates: start: 20160816, end: 20170521
  4. EXEMESTANE. [Suspect]
     Active Substance: EXEMESTANE
     Indication: BREAST CANCER METASTATIC
     Dosage: 25 MG, 1X/DAY (QD)
     Route: 048
     Dates: start: 20160331
  5. AFINITOR [Suspect]
     Active Substance: EVEROLIMUS
     Dosage: 10 MG, 1X/DAY (QD)
     Route: 048
     Dates: start: 20160503, end: 20160624
  6. CALCILAC /00944201/ [Concomitant]
     Dosage: 3 DF, UNK
     Route: 048
     Dates: start: 20160808
  7. AFINITOR [Suspect]
     Active Substance: EVEROLIMUS
     Dosage: 5 MG, 1X/DAY  (QD)
     Route: 048
     Dates: start: 20170711
  8. XGEVA [Concomitant]
     Active Substance: DENOSUMAB
     Dosage: 120 MG, MONTHLY QW4 (EVERY 4 WEEKS)
     Route: 058
     Dates: start: 20150303
  9. AFINITOR [Suspect]
     Active Substance: EVEROLIMUS
     Dosage: 7.5 MG, 1X/DAY  (QD)
     Route: 048
     Dates: start: 20170522, end: 20170710

REACTIONS (18)
  - Cystitis noninfective [Recovered/Resolved]
  - Epistaxis [Recovered/Resolved]
  - Eye pain [Recovered/Resolved]
  - Stomatitis [Recovered/Resolved]
  - Nausea [Recovered/Resolved]
  - Mucosal inflammation [Recovered/Resolved]
  - Paraesthesia [Not Recovered/Not Resolved]
  - Eastern Cooperative Oncology Group performance status worsened [Recovered/Resolved]
  - Tumour marker increased [Not Recovered/Not Resolved]
  - Stomatitis [Recovered/Resolved]
  - Aphthous ulcer [Recovered/Resolved]
  - Hypocalcaemia [Recovering/Resolving]
  - Decreased appetite [Recovered/Resolved]
  - Peripheral swelling [Recovering/Resolving]
  - Vomiting [Recovered/Resolved]
  - Dysphagia [Recovered/Resolved]
  - Oropharyngeal pain [Recovered/Resolved]
  - Fatigue [Recovered/Resolved]

NARRATIVE: CASE EVENT DATE: 20160422
